FAERS Safety Report 5143651-1 (Version None)
Quarter: 2006Q4

REPORT INFORMATION
  Report Type: 
  Country: None (occurrence: None)
  Receive Date: 20061103
  Receipt Date: 20061025
  Transmission Date: 20070319
  Serious: Yes (Hospitalization)
  Sender: FDA-Public Use
  Company Number: GB-PURDUE-GBR_2006_0002558

PATIENT
  Age: 78 Year
  Sex: Female

DRUGS (11)
  1. MORPHINE SULFATE [Suspect]
     Indication: ANALGESIC EFFECT
     Dosage: 10 MG, DAILY
     Route: 065
  2. FENTANYL CITRATE [Suspect]
     Indication: ANALGESIC EFFECT
     Dosage: 100 MCG, UNK
     Route: 065
  3. ATENOLOL [Concomitant]
     Indication: HYPERTENSION
     Route: 065
  4. CYCLIZINE [Concomitant]
     Indication: DRUG USE FOR UNKNOWN INDICATION
     Dosage: 50 MG, UNK
     Route: 065
  5. MIDAZOLAM [Concomitant]
     Indication: DRUG USE FOR UNKNOWN INDICATION
     Dosage: 2 MG, UNK
     Route: 065
  6. PROPOFOL [Concomitant]
     Indication: ANAESTHESIA
     Dosage: 150 MG, UNK
     Route: 065
  7. ROCURONIUM [Concomitant]
     Dosage: 50 MG, UNK
     Route: 065
  8. SIMVASTATIN [Concomitant]
     Indication: DRUG USE FOR UNKNOWN INDICATION
     Route: 065
  9. TRAMADOL HCL [Concomitant]
     Indication: ANALGESIC EFFECT
     Dosage: 100 MG, UNK
     Route: 042
  10. SEVOFLURANE [Concomitant]
  11. OXYGEN [Concomitant]

REACTIONS (6)
  - DELAYED RECOVERY FROM ANAESTHESIA [None]
  - DRUG INEFFECTIVE [None]
  - DRUG INTERACTION [None]
  - LABORATORY TEST ABNORMAL [None]
  - MIOSIS [None]
  - RESPIRATORY DEPRESSION [None]
